FAERS Safety Report 25514990 (Version 2)
Quarter: 2025Q3

REPORT INFORMATION
  Report Type: Spontaneous
  Country: CA (occurrence: CA)
  Receive Date: 20250703
  Receipt Date: 20250819
  Transmission Date: 20251021
  Serious: Yes (Death, Other)
  Sender: BRISTOL-MYERS SQUIBB COMPANY
  Company Number: CA-BRISTOL-MYERS SQUIBB COMPANY-2025-094194

PATIENT
  Age: 40 Year
  Sex: Female
  Weight: 96 kg

DRUGS (97)
  1. ORENCIA [Suspect]
     Active Substance: ABATACEPT
     Indication: Rheumatoid arthritis
  2. AIMOVIG [Concomitant]
     Active Substance: ERENUMAB-AOOE
     Indication: Migraine
     Route: 058
  3. AIMOVIG [Concomitant]
     Active Substance: ERENUMAB-AOOE
  4. CANDESARTAN [Concomitant]
     Active Substance: CANDESARTAN
     Indication: Migraine
  5. CORTISONE [Concomitant]
     Active Substance: CORTISONE
     Indication: Product used for unknown indication
  6. CORTISONE ACETATE [Concomitant]
     Active Substance: CORTISONE ACETATE
     Indication: Rheumatoid arthritis
     Route: 048
  7. CORTISONE ACETATE [Concomitant]
     Active Substance: CORTISONE ACETATE
     Route: 048
  8. CORTISONE ACETATE [Concomitant]
     Active Substance: CORTISONE ACETATE
  9. CORTISONE ACETATE [Concomitant]
     Active Substance: CORTISONE ACETATE
     Route: 048
  10. DESOXIMETASONE [Concomitant]
     Active Substance: DESOXIMETASONE
     Indication: Rheumatoid arthritis
     Route: 058
  11. DESOXIMETASONE [Concomitant]
     Active Substance: DESOXIMETASONE
     Route: 058
  12. DOMPERIDONE MALEATE [Concomitant]
     Active Substance: DOMPERIDONE MALEATE
     Indication: Product used for unknown indication
  13. ENBREL [Concomitant]
     Active Substance: ETANERCEPT
     Indication: Rheumatoid arthritis
     Route: 058
  14. ENBREL [Concomitant]
     Active Substance: ETANERCEPT
  15. ENBREL [Concomitant]
     Active Substance: ETANERCEPT
     Route: 058
  16. ENBREL [Concomitant]
     Active Substance: ETANERCEPT
  17. ENBREL [Concomitant]
     Active Substance: ETANERCEPT
     Route: 058
  18. FLUMETHASONE PIVALATE [Concomitant]
     Active Substance: FLUMETHASONE PIVALATE
     Indication: Product used for unknown indication
  19. FLUMETHASONE\SALICYLIC ACID [Concomitant]
     Active Substance: FLUMETHASONE\SALICYLIC ACID
     Indication: Product used for unknown indication
  20. FOLIC ACID [Concomitant]
     Active Substance: FOLIC ACID
     Indication: Rheumatoid arthritis
     Route: 048
  21. FOLIC ACID [Concomitant]
     Active Substance: FOLIC ACID
     Route: 058
  22. FOLIC ACID [Concomitant]
     Active Substance: FOLIC ACID
     Route: 048
  23. FOLIC ACID [Concomitant]
     Active Substance: FOLIC ACID
     Route: 048
  24. FOLIC ACID [Concomitant]
     Active Substance: FOLIC ACID
     Route: 048
  25. FOLIC ACID [Concomitant]
     Active Substance: FOLIC ACID
  26. FOSAMAX [Concomitant]
     Active Substance: ALENDRONATE SODIUM
     Indication: Rheumatoid arthritis
     Route: 058
  27. FOSAMAX [Concomitant]
     Active Substance: ALENDRONATE SODIUM
     Route: 048
  28. FOSAMAX [Concomitant]
     Active Substance: ALENDRONATE SODIUM
     Route: 016
  29. GOLD SODIUM THIOMALATE [Concomitant]
     Active Substance: GOLD SODIUM THIOMALATE
     Indication: Product used for unknown indication
     Route: 030
  30. GOLD SODIUM THIOMALATE [Concomitant]
     Active Substance: GOLD SODIUM THIOMALATE
     Route: 030
  31. HUMIRA [Concomitant]
     Active Substance: ADALIMUMAB
     Indication: Rheumatoid arthritis
     Route: 058
  32. HUMIRA [Concomitant]
     Active Substance: ADALIMUMAB
  33. HUMIRA [Concomitant]
     Active Substance: ADALIMUMAB
     Route: 058
  34. HYDROXYCHLOROQUINE [Concomitant]
     Active Substance: HYDROXYCHLOROQUINE
     Indication: Rheumatoid arthritis
     Route: 058
  35. HYDROXYCHLOROQUINE [Concomitant]
     Active Substance: HYDROXYCHLOROQUINE
     Route: 048
  36. HYDROXYCHLOROQUINE [Concomitant]
     Active Substance: HYDROXYCHLOROQUINE
     Route: 048
  37. HYRIMOZ [Concomitant]
     Active Substance: ADALIMUMAB-ADAZ
     Indication: Rheumatoid arthritis
     Route: 058
  38. ISOPROPYL ALCOHOL [Concomitant]
     Active Substance: ISOPROPYL ALCOHOL
     Indication: Product used for unknown indication
     Route: 048
  39. ISOPROPYL ALCOHOL [Concomitant]
     Active Substance: ISOPROPYL ALCOHOL
     Route: 048
  40. ISOPROPYL ALCOHOL [Concomitant]
     Active Substance: ISOPROPYL ALCOHOL
     Route: 048
  41. MAGNESIUM CITRATE [Concomitant]
     Active Substance: MAGNESIUM CITRATE
     Indication: Product used for unknown indication
  42. METHOTREXATE [Concomitant]
     Active Substance: METHOTREXATE
     Indication: Rheumatoid arthritis
  43. METHOTREXATE [Concomitant]
     Active Substance: METHOTREXATE
     Route: 058
  44. METHOTREXATE [Concomitant]
     Active Substance: METHOTREXATE
     Route: 013
  45. METHOTREXATE [Concomitant]
     Active Substance: METHOTREXATE
     Route: 048
  46. METHOTREXATE [Concomitant]
     Active Substance: METHOTREXATE
     Route: 048
  47. METHOTREXATE [Concomitant]
     Active Substance: METHOTREXATE
  48. METHYLPREDNISOLONE ACETATE [Concomitant]
     Active Substance: METHYLPREDNISOLONE ACETATE
     Indication: Product used for unknown indication
  49. METHYLPREDNISOLONE SODIUM SUCCINATE [Concomitant]
     Active Substance: METHYLPREDNISOLONE SODIUM SUCCINATE
     Indication: Product used for unknown indication
  50. MINOCYCLINE HYDROCHLORIDE [Concomitant]
     Active Substance: MINOCYCLINE HYDROCHLORIDE
     Indication: Rheumatoid arthritis
  51. MYOCHRYSINE [Concomitant]
     Active Substance: GOLD SODIUM THIOMALATE
     Indication: Rheumatoid arthritis
     Route: 030
  52. NAPROXEN [Concomitant]
     Active Substance: NAPROXEN
     Indication: Product used for unknown indication
  53. NAPROXEN SODIUM [Concomitant]
     Active Substance: NAPROXEN SODIUM
     Indication: Rheumatoid arthritis
  54. NICOTINAMIDE [Concomitant]
     Active Substance: NIACINAMIDE
     Indication: Product used for unknown indication
  55. NUCALA [Concomitant]
     Active Substance: MEPOLIZUMAB
     Indication: Product used for unknown indication
  56. OXYCODONE HYDROCHLORIDE [Concomitant]
     Active Substance: OXYCODONE HYDROCHLORIDE
     Indication: Product used for unknown indication
  57. PERIOGARD [Concomitant]
     Active Substance: CHLORHEXIDINE GLUCONATE
     Indication: Product used for unknown indication
     Route: 002
  58. PREDNISONE [Concomitant]
     Active Substance: PREDNISONE
     Indication: Rheumatoid arthritis
     Route: 048
  59. RAMIPRIL [Concomitant]
     Active Substance: RAMIPRIL
     Indication: Rheumatoid arthritis
     Route: 042
  60. CETIRIZINE HYDROCHLORIDE\PSEUDOEPHEDRINE HYDROCHLORIDE [Concomitant]
     Active Substance: CETIRIZINE HYDROCHLORIDE\PSEUDOEPHEDRINE HYDROCHLORIDE
     Indication: Rheumatoid arthritis
     Route: 042
  61. CETIRIZINE HYDROCHLORIDE\PSEUDOEPHEDRINE HYDROCHLORIDE [Concomitant]
     Active Substance: CETIRIZINE HYDROCHLORIDE\PSEUDOEPHEDRINE HYDROCHLORIDE
     Route: 042
  62. REMICADE [Concomitant]
     Active Substance: INFLIXIMAB
     Indication: Rheumatoid arthritis
     Route: 042
  63. REMICADE [Concomitant]
     Active Substance: INFLIXIMAB
     Route: 058
  64. REMICADE [Concomitant]
     Active Substance: INFLIXIMAB
     Route: 058
  65. RITUXIMAB [Concomitant]
     Active Substance: RITUXIMAB
     Indication: Rheumatoid arthritis
     Route: 042
  66. RITUXIMAB [Concomitant]
     Active Substance: RITUXIMAB
  67. RITUXIMAB [Concomitant]
     Active Substance: RITUXIMAB
     Route: 058
  68. RITUXIMAB [Concomitant]
     Active Substance: RITUXIMAB
  69. RITUXIMAB [Concomitant]
     Active Substance: RITUXIMAB
     Route: 043
  70. RITUXIMAB [Concomitant]
     Active Substance: RITUXIMAB
  71. ALENDRONATE SODIUM [Concomitant]
     Active Substance: ALENDRONATE SODIUM
     Indication: Rheumatoid arthritis
     Route: 048
  72. ALENDRONATE SODIUM [Concomitant]
     Active Substance: ALENDRONATE SODIUM
  73. LEFLUNOMIDE [Concomitant]
     Active Substance: LEFLUNOMIDE
     Indication: Rheumatoid arthritis
  74. LEFLUNOMIDE [Concomitant]
     Active Substance: LEFLUNOMIDE
  75. LEFLUNOMIDE [Concomitant]
     Active Substance: LEFLUNOMIDE
  76. SIMPONI [Concomitant]
     Active Substance: GOLIMUMAB
     Indication: Rheumatoid arthritis
     Route: 058
  77. SIMPONI [Concomitant]
     Active Substance: GOLIMUMAB
     Route: 058
  78. STELARA [Concomitant]
     Active Substance: USTEKINUMAB
     Indication: Product used for unknown indication
  79. STELARA [Concomitant]
     Active Substance: USTEKINUMAB
     Route: 058
  80. SULFASALAZINE [Concomitant]
     Active Substance: SULFASALAZINE
     Indication: Rheumatoid arthritis
     Route: 048
  81. SULFASALAZINE [Concomitant]
     Active Substance: SULFASALAZINE
  82. SULFASALAZINE [Concomitant]
     Active Substance: SULFASALAZINE
  83. SULFASALAZINE [Concomitant]
     Active Substance: SULFASALAZINE
  84. SULFASALAZINE [Concomitant]
     Active Substance: SULFASALAZINE
  85. SULFASALAZINE [Concomitant]
     Active Substance: SULFASALAZINE
  86. SULFASALAZINE [Concomitant]
     Active Substance: SULFASALAZINE
     Route: 058
  87. TOPIRAMATE [Concomitant]
     Active Substance: TOPIRAMATE
     Indication: Product used for unknown indication
  88. TOPIRAMATE [Concomitant]
     Active Substance: TOPIRAMATE
  89. TOPIRAMATE [Concomitant]
     Active Substance: TOPIRAMATE
  90. VITAMIN C [Concomitant]
     Active Substance: ASCORBIC ACID
     Indication: Product used for unknown indication
  91. VITAMIN C [Concomitant]
     Active Substance: ASCORBIC ACID
  92. DICLOFENAC [Concomitant]
     Active Substance: DICLOFENAC
     Indication: Product used for unknown indication
  93. DICLOFENAC [Concomitant]
     Active Substance: DICLOFENAC
     Route: 058
  94. XELJANZ [Concomitant]
     Active Substance: TOFACITINIB CITRATE
     Indication: Rheumatoid arthritis
     Route: 048
  95. XELJANZ [Concomitant]
     Active Substance: TOFACITINIB CITRATE
     Route: 048
  96. COSENTYX [Concomitant]
     Active Substance: SECUKINUMAB
     Indication: Psoriatic arthropathy
  97. ERELZI [Concomitant]
     Active Substance: ETANERCEPT-SZZS
     Indication: Product used for unknown indication

REACTIONS (1)
  - Death [Fatal]
